FAERS Safety Report 7644147-5 (Version None)
Quarter: 2011Q3

REPORT INFORMATION
  Report Type: 
  Country: None (occurrence: None)
  Receive Date: 20110729
  Receipt Date: 20110715
  Transmission Date: 20111222
  Serious: Yes (Hospitalization, Disabling)
  Sender: FDA-Public Use
  Company Number: TR-RANBAXY-2011RR-46378

PATIENT
  Age: 8 Year
  Sex: Male

DRUGS (2)
  1. TOPIRAMATE [Suspect]
     Dosage: 50 MG, BID
     Route: 048
  2. TOPIRAMATE [Suspect]
     Indication: CONVULSION
     Dosage: 25 MG, BID
     Route: 048

REACTIONS (9)
  - OVERDOSE [None]
  - SELF-MEDICATION [None]
  - LETHARGY [None]
  - HYPERREFLEXIA [None]
  - VOMITING [None]
  - NAUSEA [None]
  - WALKING DISABILITY [None]
  - SOMNOLENCE [None]
  - MENINGISM [None]
